FAERS Safety Report 16536194 (Version 2)
Quarter: 2019Q3

REPORT INFORMATION
  Report Type: Report from Study
  Country: None (occurrence: CO)
  Receive Date: 20190705
  Receipt Date: 20190829
  Transmission Date: 20191004
  Serious: Yes (Disabling, Other)
  Sender: FDA-Public Use
  Company Number: CO-ABBVIE-19K-036-2844261-00

PATIENT
  Age: 56 Year
  Sex: Male
  Weight: 80 kg

DRUGS (2)
  1. HUMIRA [Suspect]
     Active Substance: ADALIMUMAB
     Indication: PSORIASIS
     Route: 058
     Dates: start: 20130702
  2. HUMIRA [Suspect]
     Active Substance: ADALIMUMAB
     Indication: PSORIASIS
     Route: 058
     Dates: end: 2019

REACTIONS (5)
  - Limb injury [Recovering/Resolving]
  - Pain [Unknown]
  - Fall [Recovering/Resolving]
  - Peau d^orange [Unknown]
  - Skin discolouration [Unknown]

NARRATIVE: CASE EVENT DATE: 2019
